FAERS Safety Report 9833473 (Version 1)
Quarter: 2014Q1

REPORT INFORMATION
  Report Type: Spontaneous
  Country: US (occurrence: US)
  Receive Date: 20140122
  Receipt Date: 20140122
  Transmission Date: 20141002
  Serious: Yes (Hospitalization)
  Sender: FDA-Public Use
  Company Number: US-ROCHE-1333117

PATIENT
  Age: 73 Year
  Sex: Male

DRUGS (7)
  1. ERIVEDGE [Suspect]
     Indication: BASAL CELL CARCINOMA
     Route: 048
     Dates: start: 201307, end: 20131108
  2. METFORMIN [Concomitant]
     Route: 065
  3. VYTORIN [Concomitant]
     Route: 065
  4. LOSARTAN [Concomitant]
     Route: 065
  5. AMLODIPINE [Concomitant]
     Route: 065
  6. VICTOZA [Concomitant]
     Route: 065
  7. ACTOS [Concomitant]
     Route: 065

REACTIONS (1)
  - Intestinal perforation [Unknown]
